FAERS Safety Report 8281251-5 (Version None)
Quarter: 2012Q2

REPORT INFORMATION
  Report Type: 
  Country: None (occurrence: None)
  Receive Date: 20120413
  Receipt Date: 20120406
  Transmission Date: 20120825
  Serious: Yes (Other)
  Sender: FDA-Public Use
  Company Number: US-BRISTOL-MYERS SQUIBB COMPANY-16507568

PATIENT
  Age: 60 Year
  Sex: Male

DRUGS (3)
  1. REYATAZ [Suspect]
     Dates: start: 20120104
  2. PROTONIX [Concomitant]
  3. NORVIR [Concomitant]

REACTIONS (3)
  - VIRAL LOAD INCREASED [None]
  - CD4 LYMPHOCYTES DECREASED [None]
  - HEADACHE [None]
